FAERS Safety Report 10579795 (Version 7)
Quarter: 2015Q2

REPORT INFORMATION
  Report Type: Report from Study
  Country: US (occurrence: US)
  Receive Date: 20141112
  Receipt Date: 20150602
  Transmission Date: 20150821
  Serious: Yes (Other)
  Sender: FDA-Public Use
  Company Number: US-MERCK-1310USA002547

PATIENT
  Age: 33 Year
  Sex: Female
  Weight: 61.2 kg

DRUGS (18)
  1. XANAX [Concomitant]
     Active Substance: ALPRAZOLAM
     Indication: ANXIETY
     Dosage: TOTAL DAILY DOSE: 10 MG, PRN
     Route: 048
     Dates: start: 201201
  2. ZOFRAN [Concomitant]
     Active Substance: ONDANSETRON HYDROCHLORIDE
     Indication: NAUSEA
     Dosage: TOTAL DAILY DOSE: 4 MG, PRN
     Route: 048
     Dates: start: 201201, end: 201404
  3. PEPCID [Concomitant]
     Active Substance: FAMOTIDINE
     Indication: PROPHYLAXIS
     Dosage: TOTAL DAILY DOSE: 20 MG, PRN
     Route: 042
     Dates: start: 20130516
  4. MEDROL [Concomitant]
     Active Substance: METHYLPREDNISOLONE
     Indication: MIGRAINE
     Dosage: 16 MG, QD
     Route: 048
     Dates: start: 20130918, end: 20130918
  5. MEDROL [Concomitant]
     Active Substance: METHYLPREDNISOLONE
     Indication: MIGRAINE
     Dosage: 24 MG, QD
     Route: 048
     Dates: start: 20130916, end: 20130916
  6. MEDROL [Concomitant]
     Active Substance: METHYLPREDNISOLONE
     Indication: MIGRAINE
     Dosage: 12 MG, QD
     Route: 048
     Dates: start: 20130919, end: 20130919
  7. PEMBROLIZUMAB. [Suspect]
     Active Substance: PEMBROLIZUMAB
     Dosage: UNK, Q3W
     Route: 042
     Dates: start: 20130919, end: 20130919
  8. SENNA [Concomitant]
     Active Substance: SENNA LEAF\SENNOSIDES\SENNOSIDES A AND B
     Indication: CONSTIPATION
     Dosage: TOTAL DAILY DOSE: 1 TABLET, PRN
     Route: 048
     Dates: start: 201212
  9. BENADRYL [Concomitant]
     Active Substance: DIPHENHYDRAMINE HYDROCHLORIDE
     Indication: PROPHYLAXIS
     Dosage: TOTAL DAILY DOSE: 25 MG, FORMULATION: PILL, FREQUENCY: OTHER
     Route: 048
     Dates: start: 20130516
  10. PEMBROLIZUMAB. [Suspect]
     Active Substance: PEMBROLIZUMAB
     Indication: MALIGNANT MELANOMA
     Dosage: UNK, Q3W
     Route: 042
     Dates: start: 20130404, end: 20130828
  11. MEDROL [Concomitant]
     Active Substance: METHYLPREDNISOLONE
     Indication: MIGRAINE
     Dosage: 4 MG, QD
     Route: 048
     Dates: start: 20130921, end: 20130921
  12. FENTANYL. [Concomitant]
     Active Substance: FENTANYL
     Indication: PAIN
     Dosage: TOTAL DAILY DOSE: 1 PATCH, FREQUENCY: OTHER
     Route: 061
     Dates: start: 20130621, end: 20140214
  13. OXYCODONE [Concomitant]
     Active Substance: OXYCODONE
     Indication: PAIN
     Dosage: TOTAL DAILY DOSE: 10 MG, PRN, FORMULATION: PILL
     Route: 048
     Dates: start: 20130621, end: 20140213
  14. MEDROL [Concomitant]
     Active Substance: METHYLPREDNISOLONE
     Indication: MIGRAINE
     Dosage: 24 MG, QD
     Route: 048
     Dates: start: 20130917, end: 20130917
  15. TEMAZEPAM. [Concomitant]
     Active Substance: TEMAZEPAM
     Indication: INSOMNIA
     Dosage: TOTAL DAILY DOSE: 1 TABLET, PRN
     Route: 048
     Dates: start: 201206, end: 201311
  16. MEDROL [Concomitant]
     Active Substance: METHYLPREDNISOLONE
     Indication: MIGRAINE
     Dosage: 8 MG, QD
     Route: 048
     Dates: start: 20130920, end: 20130920
  17. PEMBROLIZUMAB. [Suspect]
     Active Substance: PEMBROLIZUMAB
     Dosage: UNK, Q3W
     Route: 042
     Dates: start: 20131205
  18. MEDROL [Concomitant]
     Active Substance: METHYLPREDNISOLONE
     Indication: MIGRAINE
     Dosage: 2 MG, QD
     Route: 048
     Dates: start: 20130922, end: 20130922

REACTIONS (1)
  - Meningitis noninfective [Recovered/Resolved]

NARRATIVE: CASE EVENT DATE: 20130927
